FAERS Safety Report 22027160 (Version 5)
Quarter: 2023Q2

REPORT INFORMATION
  Report Type: Report from Study
  Country: US (occurrence: US)
  Receive Date: 20230223
  Receipt Date: 20230418
  Transmission Date: 20230722
  Serious: Yes (Other)
  Sender: FDA-Public Use
  Company Number: US-002147023-NVSC2023US042155

PATIENT
  Sex: Female

DRUGS (1)
  1. PIQRAY [Suspect]
     Active Substance: ALPELISIB
     Indication: Product used for unknown indication
     Dosage: UNK
     Route: 048

REACTIONS (8)
  - Metastases to liver [Unknown]
  - Metastases to bone [Unknown]
  - Neoplasm progression [Unknown]
  - Nausea [Recovered/Resolved with Sequelae]
  - Vomiting [Unknown]
  - Alopecia [Unknown]
  - Fatigue [Unknown]
  - General physical health deterioration [Unknown]
